FAERS Safety Report 10396720 (Version 3)
Quarter: 2014Q4

REPORT INFORMATION
  Report Type: Spontaneous
  Country: BR (occurrence: BR)
  Receive Date: 20140820
  Receipt Date: 20141223
  Transmission Date: 20150528
  Serious: Yes (Other)
  Sender: FDA-Public Use
  Company Number: BR-GLAXOSMITHKLINE-A1085727A

PATIENT
  Age: 3 Year
  Sex: Male

DRUGS (2)
  1. ZINNAT [Suspect]
     Active Substance: CEFUROXIME AXETIL
     Indication: ACUTE TONSILLITIS
     Dosage: 250 MG/ 5 ML, 5.5 ML, BID
     Route: 048
     Dates: start: 20140809, end: 20140810
  2. DIPIRONE [Concomitant]
     Active Substance: METAMIZOLE SODIUM

REACTIONS (6)
  - Product quality issue [Unknown]
  - Vomiting [Recovered/Resolved]
  - Choking [Recovered/Resolved]
  - Retching [Recovered/Resolved]
  - Blood pressure decreased [Recovered/Resolved]
  - Decreased appetite [Recovered/Resolved]

NARRATIVE: CASE EVENT DATE: 20140809
